FAERS Safety Report 9901115 (Version 2)
Quarter: 2016Q2

REPORT INFORMATION
  Report Type: Spontaneous
  Country: US (occurrence: US)
  Receive Date: 20140217
  Receipt Date: 20160419
  Transmission Date: 20160815
  Serious: No
  Sender: FDA-Public Use
  Company Number: US-PFIZER INC-2014042718

PATIENT
  Age: 64 Year
  Sex: Female

DRUGS (2)
  1. NORVASC [Suspect]
     Active Substance: AMLODIPINE BESYLATE
     Dosage: UNK
  2. LISINOPRIL. [Suspect]
     Active Substance: LISINOPRIL
     Dosage: UNK

REACTIONS (3)
  - Dyspnoea [Unknown]
  - Drug hypersensitivity [Unknown]
  - Headache [Unknown]
